FAERS Safety Report 9397575 (Version 1)
Quarter: 2013Q3

REPORT INFORMATION
  Report Type: Other
  Country: GB (occurrence: GB)
  Receive Date: 20130712
  Receipt Date: 20130712
  Transmission Date: 20140515
  Serious: Yes (Other)
  Sender: FDA-Public Use
  Company Number: GB-TARO PHARMACEUTICALS U.S.A., INC-2013SUN00961

PATIENT
  Age: 63 Year
  Sex: Female
  Weight: 71 kg

DRUGS (2)
  1. CARBAMAZEPINE [Suspect]
     Indication: BIPOLAR DISORDER
     Dosage: 500 MG, UNK
     Route: 065
  2. PL 17507/0148 AUDMONAL CAPSULES 60MG [Suspect]
     Indication: IRRITABLE BOWEL SYNDROME
     Dosage: 60 MG, BID
     Route: 065
     Dates: start: 20130613, end: 20130614

REACTIONS (5)
  - Photophobia [Recovering/Resolving]
  - Lip swelling [Recovering/Resolving]
  - Frequent bowel movements [Recovering/Resolving]
  - Dizziness [Recovering/Resolving]
  - Vomiting [Recovering/Resolving]
